FAERS Safety Report 7289250-7 (Version None)
Quarter: 2011Q1

REPORT INFORMATION
  Report Type: 
  Country: None (occurrence: None)
  Receive Date: 20110201
  Receipt Date: 20110115
  Transmission Date: 20110831
  Serious: Yes (Other)
  Sender: FDA-Public Use
  Company Number: 2011AP000057

PATIENT
  Age: 76 Year
  Sex: Female

DRUGS (1)
  1. FLUCONAZOLE [Suspect]
     Indication: COCCIDIOIDOMYCOSIS
     Dosage: 1200 MG;QD ; 1000 MG;QD ; 400 MG;QD

REACTIONS (3)
  - TOXICITY TO VARIOUS AGENTS [None]
  - RETINAL VEIN OCCLUSION [None]
  - CYSTOID MACULAR OEDEMA [None]
